FAERS Safety Report 8817499 (Version 1)
Quarter: 2012Q4

REPORT INFORMATION
  Report Type: 
  Country: US (occurrence: US)
  Receive Date: 20121004
  Receipt Date: 20121004
  Transmission Date: 20130627
  Serious: Yes (Hospitalization, Other)
  Sender: FDA-Public Use
  Company Number: US-US-EMD SERONO, INC.-7162054

PATIENT
  Sex: Female
  Weight: 54 kg

DRUGS (2)
  1. REBIF [Suspect]
     Indication: MULTIPLE SCLEROSIS
     Route: 058
  2. REBIF [Suspect]

REACTIONS (7)
  - Hypertension [Unknown]
  - Stress [Unknown]
  - Suicidal ideation [Unknown]
  - Depression [Unknown]
  - Chondrocalcinosis [Unknown]
  - Injection site nodule [Unknown]
  - Influenza like illness [Unknown]
